FAERS Safety Report 7464896-1 (Version None)
Quarter: 2011Q2

REPORT INFORMATION
  Report Type: 
  Country: None (occurrence: None)
  Receive Date: 20110509
  Receipt Date: 20101130
  Transmission Date: 20111010
  Serious: Yes (Hospitalization, Other)
  Sender: FDA-Public Use
  Company Number: US-BAYER-201038081NA

PATIENT
  Age: 29 Year
  Sex: Female
  Weight: 94 kg

DRUGS (6)
  1. YAZ [Suspect]
     Indication: ORAL CONTRACEPTION
     Dosage: 1 DF, QD
     Route: 048
     Dates: start: 20070826, end: 20080726
  2. BENADRYL [Concomitant]
     Dosage: 50 MG, QID, PRN
     Route: 048
     Dates: start: 20070612
  3. YASMIN [Suspect]
     Indication: PRODUCT USED FOR UNKNOWN INDICATION
  4. DROSPIRENONE AND ETHINYL ESTRADIOL [Suspect]
     Indication: PRODUCT USED FOR UNKNOWN INDICATION
  5. KEFLEX [Concomitant]
     Dosage: 500 MG, QID
     Route: 048
     Dates: start: 20070612
  6. ADVIL LIQUI-GELS [Concomitant]
     Dosage: ALL THE TIME

REACTIONS (4)
  - CHOLECYSTITIS [None]
  - ABDOMINAL PAIN [None]
  - CHOLELITHIASIS [None]
  - INJURY [None]
